FAERS Safety Report 7877594-7 (Version None)
Quarter: 2011Q4

REPORT INFORMATION
  Report Type: 
  Country: None (occurrence: None)
  Receive Date: 20111031
  Receipt Date: 20111021
  Transmission Date: 20120403
  Serious: Yes (Hospitalization)
  Sender: FDA-Public Use
  Company Number: IT-ASTRAZENECA-2011SE62018

PATIENT
  Age: 24063 Day
  Sex: Male

DRUGS (12)
  1. CATAPRESAN TTS [Concomitant]
  2. MAG 2 [Concomitant]
  3. NEORAL [Concomitant]
     Indication: LIVER TRANSPLANT
     Route: 048
  4. LAEVOLAC [Concomitant]
  5. OMEPRAZOLE [Suspect]
     Indication: PROPHYLAXIS AGAINST GASTROINTESTINAL ULCER
     Route: 048
     Dates: start: 20090901
  6. ROCALTROL [Suspect]
     Indication: HYPOCALCAEMIA
     Route: 048
     Dates: start: 20090901, end: 20110615
  7. CALCIUM SANDOZ [Suspect]
     Indication: HYPOCALCAEMIA
     Route: 048
     Dates: start: 20090901, end: 20110615
  8. KANRENOL [Concomitant]
     Route: 048
  9. LASIX [Concomitant]
     Route: 048
  10. MIRCERA [Concomitant]
     Indication: ANAEMIA
     Dosage: 75 UMG INJECTION SOLUTION, SUBCUTANEOUS OR INTRAVENOUS USE, 1 SYRINGE PRE-FILLED, 0.3 ML (250MG)
  11. MYCOPHENOLATE MOFETIL (CELLCEPT) [Concomitant]
     Route: 048
  12. NOROXIN [Concomitant]
     Route: 048

REACTIONS (1)
  - HYPERCALCAEMIA [None]
